FAERS Safety Report 7472325-7 (Version None)
Quarter: 2011Q2

REPORT INFORMATION
  Report Type: 
  Country: None (occurrence: None)
  Receive Date: 20110502
  Receipt Date: 20110419
  Transmission Date: 20111010
  Serious: Yes (Disabling)
  Sender: FDA-Public Use
  Company Number: 2011MA004640

PATIENT
  Age: 64 Year
  Sex: Male

DRUGS (3)
  1. TRAMADOL HYDROCHLORIDE [Suspect]
     Indication: BACK PAIN
     Dates: start: 20110404
  2. ACETAMINOPHEN [Concomitant]
  3. SERTRALINE HYDROCHLORIDE [Suspect]
     Dates: start: 20110121

REACTIONS (1)
  - SEROTONIN SYNDROME [None]
